FAERS Safety Report 7930185-1 (Version None)
Quarter: 2011Q4

REPORT INFORMATION
  Report Type: 
  Country: None (occurrence: None)
  Receive Date: 20111117
  Receipt Date: 20111104
  Transmission Date: 20120403
  Serious: Yes (Hospitalization)
  Sender: FDA-Public Use
  Company Number: UTC-010858

PATIENT
  Age: 79 Year
  Sex: Female
  Weight: 71.3 kg

DRUGS (2)
  1. TYVASO [Suspect]
     Indication: PULMONARY ARTERIAL HYPERTENSION
     Dosage: 96 MCG (24 MCG,4 IN 1 D),INHALATION,  5 BREATHS (4 IN 1 D),INHALATION,12-54 MICROGRAMS (4 IN 1 D),IN
     Route: 055
     Dates: start: 20110413
  2. TYVASO [Suspect]
     Indication: PULMONARY ARTERIAL HYPERTENSION
     Dosage: 96 MCG (24 MCG,4 IN 1 D),INHALATION,  5 BREATHS (4 IN 1 D),INHALATION,12-54 MICROGRAMS (4 IN 1 D),IN
     Route: 055
     Dates: end: 20110101

REACTIONS (1)
  - CHEST DISCOMFORT [None]
